FAERS Safety Report 24680400 (Version 1)
Quarter: 2024Q4

REPORT INFORMATION
  Report Type: Spontaneous
  Country: US (occurrence: US)
  Receive Date: 20241129
  Receipt Date: 20241129
  Transmission Date: 20250115
  Serious: Yes (Life-Threatening, Other)
  Sender: BRACCO
  Company Number: US-BRACCO-2024US04777

PATIENT
  Age: 85 Year
  Sex: Female

DRUGS (12)
  1. LUMASON [Suspect]
     Active Substance: SULFUR HEXAFLUORIDE
     Indication: Echocardiogram
     Dosage: 2 ML  (LUMASON DILUTED WITH 6 ML OF SALINE)
     Route: 042
     Dates: start: 20240730, end: 20240730
  2. LUMASON [Suspect]
     Active Substance: SULFUR HEXAFLUORIDE
     Indication: Echocardiogram
     Dosage: 2 ML  (LUMASON DILUTED WITH 6 ML OF SALINE)
     Route: 042
     Dates: start: 20240730, end: 20240730
  3. LUMASON [Suspect]
     Active Substance: SULFUR HEXAFLUORIDE
     Indication: Echocardiogram
     Dosage: 2 ML  (LUMASON DILUTED WITH 6 ML OF SALINE)
     Route: 042
     Dates: start: 20240730, end: 20240730
  4. BISOPROLOL [Concomitant]
     Active Substance: BISOPROLOL
  5. CALCIUM CARBONATE [Concomitant]
     Active Substance: CALCIUM CARBONATE
  6. CRANBERRY 400 [Concomitant]
     Dosage: 400-600 MG DAILY
  7. HYDROCHLOROTHIAZIDE [Concomitant]
     Active Substance: HYDROCHLOROTHIAZIDE
  8. MAGNESIUM OXIDE [Concomitant]
     Active Substance: MAGNESIUM OXIDE
     Dosage: 400 MG, QD
  9. VITAMINS [Concomitant]
     Active Substance: VITAMINS
  10. PAROXETINE HYDROCHLORIDE [Concomitant]
     Active Substance: PAROXETINE HYDROCHLORIDE
     Dosage: 20 MG
  11. POTASSIUM CITRATE [Concomitant]
     Active Substance: POTASSIUM CITRATE
  12. SALINE [Concomitant]
     Active Substance: SODIUM CHLORIDE
     Dosage: 6 ML DILUTED WITH LUMASON
     Dates: start: 20240730, end: 20240730

REACTIONS (1)
  - Cardio-respiratory arrest [Unknown]

NARRATIVE: CASE EVENT DATE: 20240730
